FAERS Safety Report 6764284-7 (Version None)
Quarter: 2010Q2

REPORT INFORMATION
  Report Type: 
  Country: None (occurrence: None)
  Receive Date: 20100610
  Receipt Date: 20100602
  Transmission Date: 20101027
  Serious: Yes (Hospitalization)
  Sender: FDA-Public Use
  Company Number: US-MERCK-1003USA04099

PATIENT
  Age: 13 Year
  Sex: Male
  Weight: 50 kg

DRUGS (4)
  1. SINGULAIR [Suspect]
     Indication: ASTHMA
     Route: 048
     Dates: start: 20050401, end: 20100323
  2. SINGULAIR [Suspect]
     Indication: HYPERSENSITIVITY
     Route: 048
     Dates: start: 20050401, end: 20100323
  3. ZYRTEC [Concomitant]
     Route: 065
     Dates: start: 20080723
  4. XOPENEX [Concomitant]
     Route: 065

REACTIONS (11)
  - ADVERSE EVENT [None]
  - ASTHMA [None]
  - COUGH [None]
  - DEPRESSION [None]
  - DYSPNOEA EXERTIONAL [None]
  - EAR PAIN [None]
  - MENTAL DISORDER [None]
  - MOOD SWINGS [None]
  - NASAL OEDEMA [None]
  - SUICIDAL IDEATION [None]
  - VOMITING [None]
